FAERS Safety Report 5161712-8 (Version None)
Quarter: 2006Q4

REPORT INFORMATION
  Report Type: 
  Country: None (occurrence: None)
  Receive Date: 20061121
  Receipt Date: 20061109
  Transmission Date: 20070319
  Serious: Yes (Disabling)
  Sender: FDA-Public Use
  Company Number: 2006085654

PATIENT
  Age: 77 Year
  Sex: Male
  Weight: 58 kg

DRUGS (14)
  1. ZYVOX [Suspect]
     Indication: WOUND INFECTION
     Dosage: 1200 MG (600 MG, 2 IN 1 D), ORAL
     Route: 048
     Dates: start: 20060329, end: 20060412
  2. BISOPROLOL FUMARATE [Concomitant]
  3. ALLOPURINOL [Concomitant]
  4. LEVOTHYROXINE SODIUM [Concomitant]
  5. ASPIRIN [Concomitant]
  6. AMIODARONE HCL [Concomitant]
  7. WARFARIN SODIUM [Concomitant]
  8. OMEPRAZOLE [Concomitant]
  9. ISOSORBIDE MONONITRATE [Concomitant]
  10. DEPAS (ETIZOLAM) [Concomitant]
  11. FERROMIA (FERROUS CITRATE) [Concomitant]
  12. LASIX [Concomitant]
  13. TORSEMIDE [Concomitant]
  14. HEPARIN [Concomitant]

REACTIONS (3)
  - HEPATIC FUNCTION ABNORMAL [None]
  - PLATELET COUNT DECREASED [None]
  - RENAL IMPAIRMENT [None]
